FAERS Safety Report 4434323-7 (Version None)
Quarter: 2004Q3

REPORT INFORMATION
  Report Type: 
  Country: None (occurrence: None)
  Receive Date: 20040826
  Receipt Date: 20021015
  Transmission Date: 20050211
  Serious: Yes (Hospitalization, Disabling)
  Sender: FDA-Public Use
  Company Number: US-MERCK-0210USA01631

PATIENT
  Age: 39 Year
  Sex: Female
  Weight: 73 kg

DRUGS (14)
  1. SANDIMMUNE [Concomitant]
     Indication: DERMATOMYOSITIS
     Route: 065
     Dates: start: 19970101
  2. SANDIMMUNE [Concomitant]
     Route: 065
     Dates: start: 20020101
  3. SANDIMMUNE [Concomitant]
     Route: 065
  4. YASMIN [Suspect]
     Indication: MENSTRUATION IRREGULAR
     Route: 065
     Dates: start: 20020210, end: 20020223
  5. HORMONAL CONTRACEPTIVES (UNSPECIFIED) [Concomitant]
     Route: 030
     Dates: start: 20011210
  6. PRELONE [Concomitant]
     Indication: DERMATOMYOSITIS
     Route: 065
     Dates: start: 19930101
  7. PRELONE [Concomitant]
     Route: 065
     Dates: start: 20020101
  8. PREDNISONE [Concomitant]
     Route: 065
  9. VIOXX [Suspect]
     Indication: ARTHRALGIA
     Route: 048
     Dates: start: 19990817, end: 20000101
  10. VIOXX [Suspect]
     Route: 048
     Dates: start: 20000101, end: 20020601
  11. VIOXX [Suspect]
     Route: 048
     Dates: start: 20020101, end: 20020703
  12. VIOXX [Suspect]
     Indication: DERMATOMYOSITIS
     Route: 048
     Dates: start: 19990817, end: 20000101
  13. VIOXX [Suspect]
     Route: 048
     Dates: start: 20000101, end: 20020601
  14. VIOXX [Suspect]
     Route: 048
     Dates: start: 20020101, end: 20020703

REACTIONS (33)
  - ADJUSTMENT DISORDER [None]
  - AFFECTIVE DISORDER [None]
  - ANAEMIA [None]
  - ANGINA PECTORIS [None]
  - BENIGN COLONIC POLYP [None]
  - DEEP VEIN THROMBOSIS [None]
  - DEPRESSION [None]
  - DIABETES MELLITUS NON-INSULIN-DEPENDENT [None]
  - DYSPEPSIA [None]
  - ECZEMA [None]
  - GASTRITIS [None]
  - HAEMORRHOIDAL HAEMORRHAGE [None]
  - HEAD INJURY [None]
  - HEADACHE [None]
  - HEART RATE IRREGULAR [None]
  - HOT FLUSH [None]
  - HYPOCHROMIC ANAEMIA [None]
  - INSOMNIA [None]
  - INTRACRANIAL VENOUS SINUS THROMBOSIS [None]
  - JOINT EFFUSION [None]
  - LOCALISED OSTEOARTHRITIS [None]
  - MIGRAINE [None]
  - MUSCULOSKELETAL STIFFNESS [None]
  - NAUSEA [None]
  - NECK PAIN [None]
  - PHARYNGOLARYNGEAL PAIN [None]
  - RASH [None]
  - SINUS TACHYCARDIA [None]
  - SUBARACHNOID HAEMORRHAGE [None]
  - UTERINE ENLARGEMENT [None]
  - UTERINE LEIOMYOMA [None]
  - VISUAL DISTURBANCE [None]
  - VOMITING [None]
